FAERS Safety Report 9716518 (Version 1)
Quarter: 2013Q4

REPORT INFORMATION
  Report Type: Spontaneous
  Country: US (occurrence: US)
  Receive Date: 20131127
  Receipt Date: 20131127
  Transmission Date: 20140711
  Serious: Yes (Other)
  Sender: FDA-Public Use
  Company Number: US-PFIZER INC-2013333903

PATIENT
  Age: 46 Year
  Sex: Male
  Weight: 46.26 kg

DRUGS (12)
  1. AZITHROMYCIN [Suspect]
     Dosage: UNK
  2. CIPROFLOXACIN [Suspect]
     Dosage: UNK
  3. CLARITHROMYCIN [Suspect]
     Dosage: UNK
  4. DOXYCYCLINE HYCLATE [Suspect]
     Indication: MYCOBACTERIUM AVIUM COMPLEX INFECTION
     Dosage: UNK
  5. ETHAMBUTOL [Suspect]
     Indication: MYCOBACTERIUM AVIUM COMPLEX INFECTION
     Dosage: UNK
  6. ETHIONAMIDE [Suspect]
     Dosage: UNK
  7. KANAMYCIN SULFATE [Suspect]
     Dosage: UNK
  8. LINEZOLID [Suspect]
     Indication: MYCOBACTERIUM AVIUM COMPLEX INFECTION
     Dosage: UNK
  9. RIFABUTIN [Suspect]
     Indication: MYCOBACTERIUM AVIUM COMPLEX INFECTION
     Dosage: UNK
  10. STREPTOMYCIN [Suspect]
     Dosage: UNK
  11. AMIKACIN [Suspect]
     Indication: MYCOBACTERIUM AVIUM COMPLEX INFECTION
     Dosage: UNK
  12. MOXIFLOXACIN [Suspect]
     Indication: MYCOBACTERIUM AVIUM COMPLEX INFECTION
     Dosage: UNK

REACTIONS (4)
  - Drug resistance [Unknown]
  - Drug effect incomplete [Unknown]
  - Abdominal pain [Not Recovered/Not Resolved]
  - Muscle atrophy [Unknown]
